FAERS Safety Report 21407270 (Version 2)
Quarter: 2023Q4

REPORT INFORMATION
  Report Type: Report from Study
  Country: CA (occurrence: CA)
  Receive Date: 20221004
  Receipt Date: 20231115
  Transmission Date: 20240109
  Serious: No
  Sender: FDA-Public Use
  Company Number: CA-CELLTRION INC.-2022CA015873

PATIENT

DRUGS (13)
  1. TRUXIMA [Suspect]
     Active Substance: RITUXIMAB-ABBS
     Indication: Encephalitis autoimmune
     Dosage: 1000MG GIVEN ON DAY 1 AND 1000MG GIVEN ON DAY 15 THEN 1000MG Q 6 MONTHS FOR 24 MONTHS^2 X 500MG VIAL
     Dates: start: 202210
  2. ZYLOPRIM [Concomitant]
     Active Substance: ALLOPURINOL
     Dosage: 200 MG BY MOUTH DAILY
     Route: 048
  3. CYANOCOBALAMIN [Concomitant]
     Active Substance: CYANOCOBALAMIN
     Dosage: 500 MICROGRAM, BY MOUTH DAILY
     Route: 048
  4. AVODART [Concomitant]
     Active Substance: DUTASTERIDE
     Dosage: 0.5 MG, BY MOUTH DAILY
     Route: 048
  5. GLYCERIN ADULT [Concomitant]
     Active Substance: GLYCERIN
     Dosage: 2.34 GRAM, 1 SUPPOSITORY INTO THE RECTUM DAILY AS NEEDED
     Route: 054
  6. INDOMETHACIN [Concomitant]
     Active Substance: INDOMETHACIN
     Indication: Gout
     Dosage: 50 MG, THREE TIMES A DAY AS NEEDED
     Route: 048
  7. LACTULOSE [Concomitant]
     Active Substance: LACTULOSE
     Dosage: 15 ML, BY MOUTH DAILY
     Route: 048
  8. MELATONIN [Concomitant]
     Active Substance: MELATONIN
     Dosage: 3 MG BY MOUTH NIGHTLY
     Route: 048
  9. ALTACE [Concomitant]
     Active Substance: RAMIPRIL
     Dosage: 2.5 MG, BY MOUTH DAILY
     Route: 048
  10. RITUXAN [Concomitant]
     Active Substance: RITUXIMAB
     Dosage: INFUSE INTO A VENOUS CATHETER
     Route: 042
  11. FLOMAX [Concomitant]
     Active Substance: TAMSULOSIN HYDROCHLORIDE
     Dosage: 0.4 MG, BY MOUTH DAILY (EXTENDED RELEASE 24 HR)
     Route: 048
  12. VITAMIN B1 [Concomitant]
     Active Substance: THIAMINE HYDROCHLORIDE
     Dosage: 100 MG, BY MOUTH DAILY
     Route: 048
  13. VITAMIN D3 [Concomitant]
     Active Substance: CHOLECALCIFEROL
     Dosage: 1000 UNIT (25 MCG) TABLET 3000 INTERNATIONAL UNIT, BY MOUTH DAILY
     Route: 048

REACTIONS (1)
  - Off label use [Unknown]
